FAERS Safety Report 7441765-4 (Version None)
Quarter: 2011Q2

REPORT INFORMATION
  Report Type: 
  Country: None (occurrence: None)
  Receive Date: 20110428
  Receipt Date: 20110418
  Transmission Date: 20111010
  Serious: Yes (Hospitalization)
  Sender: FDA-Public Use
  Company Number: JP-SANOFI-AVENTIS-2011SA023676

PATIENT
  Age: 75 Year
  Sex: Female

DRUGS (8)
  1. CALCIUM LEVOFOLINATE [Suspect]
     Indication: LARGE INTESTINE CARCINOMA
     Route: 042
     Dates: start: 20110323, end: 20110323
  2. OXALIPLATIN [Suspect]
     Indication: LARGE INTESTINE CARCINOMA
     Route: 042
     Dates: start: 20110323, end: 20110323
  3. OXALIPLATIN [Suspect]
     Route: 042
     Dates: start: 20110407, end: 20110407
  4. CALCIUM LEVOFOLINATE [Suspect]
     Route: 042
     Dates: start: 20110407, end: 20110407
  5. BEVACIZUMAB [Suspect]
     Indication: LARGE INTESTINE CARCINOMA
     Route: 041
     Dates: start: 20110323, end: 20110323
  6. FLUOROURACIL [Suspect]
     Indication: LARGE INTESTINE CARCINOMA
     Route: 042
     Dates: start: 20110323
  7. FLUOROURACIL [Suspect]
     Route: 042
     Dates: start: 20110407
  8. BEVACIZUMAB [Suspect]
     Route: 041
     Dates: start: 20110407, end: 20110407

REACTIONS (1)
  - GASTROINTESTINAL PERFORATION [None]
